FAERS Safety Report 19427050 (Version 1)
Quarter: 2021Q2

REPORT INFORMATION
  Report Type: Spontaneous
  Country: BR (occurrence: BR)
  Receive Date: 20210616
  Receipt Date: 20210616
  Transmission Date: 20210717
  Serious: Yes (Other)
  Sender: FDA-Public Use
  Company Number: BR-ORGANON-O2105BRA000129

PATIENT
  Age: 35 Year
  Sex: Female
  Weight: 70 kg

DRUGS (2)
  1. NUVARING [Suspect]
     Active Substance: ETHINYL ESTRADIOL\ETONOGESTREL
     Indication: CONTRACEPTION
     Dosage: 1 RING, Q3W
     Route: 067
     Dates: start: 2021, end: 2021
  2. NUVARING [Suspect]
     Active Substance: ETHINYL ESTRADIOL\ETONOGESTREL
     Dosage: 1 RING, Q3W
     Route: 067
     Dates: start: 2021, end: 2021

REACTIONS (5)
  - Medical device site discomfort [Recovered/Resolved]
  - Cervix injury [Recovered/Resolved]
  - Incorrect product administration duration [Unknown]
  - Device breakage [Unknown]
  - Cervix haemorrhage uterine [Recovered/Resolved]

NARRATIVE: CASE EVENT DATE: 2021
